FAERS Safety Report 5049801-X (Version None)
Quarter: 2006Q3

REPORT INFORMATION
  Report Type: 
  Country: None (occurrence: None)
  Receive Date: 20060712
  Receipt Date: 20060710
  Transmission Date: 20061208
  Serious: Yes (Other)
  Sender: FDA-Public Use
  Company Number: ES-MERCK-0607ESP00013

PATIENT
  Age: 5 Year
  Sex: Male

DRUGS (6)
  1. SINGULAIR [Suspect]
     Indication: ASTHMA
     Route: 048
     Dates: start: 20040101
  2. SINGULAIR [Suspect]
     Indication: HOUSE DUST ALLERGY
     Route: 048
     Dates: start: 20040101
  3. BUDESONIDE [Suspect]
     Indication: ASTHMA
     Route: 055
     Dates: start: 20030101
  4. BUDESONIDE [Suspect]
     Indication: HOUSE DUST ALLERGY
     Route: 055
     Dates: start: 20030101
  5. ALBUTEROL SULFATE [Concomitant]
     Indication: ASTHMA
     Route: 055
  6. ALBUTEROL SULFATE [Concomitant]
     Indication: HOUSE DUST ALLERGY
     Route: 055

REACTIONS (1)
  - PATHOLOGICAL FRACTURE [None]
